FAERS Safety Report 16615699 (Version 1)
Quarter: 2019Q3

REPORT INFORMATION
  Report Type: Spontaneous
  Country: US (occurrence: US)
  Receive Date: 20190723
  Receipt Date: 20190723
  Transmission Date: 20191004
  Serious: No
  Sender: FDA-Public Use
  Company Number: US-ABBVIE-19P-163-2813187-00

PATIENT
  Age: 34 Year
  Sex: Female

DRUGS (1)
  1. ORILISSA [Suspect]
     Active Substance: ELAGOLIX SODIUM
     Indication: ENDOMETRIOSIS
     Route: 048
     Dates: start: 201812, end: 201812

REACTIONS (4)
  - Nausea [Recovered/Resolved]
  - Drug ineffective [Unknown]
  - Metrorrhagia [Recovered/Resolved]
  - Endometriosis [Recovered/Resolved]

NARRATIVE: CASE EVENT DATE: 201812
